FAERS Safety Report 9262577 (Version 2)
Quarter: 2013Q4

REPORT INFORMATION
  Report Type: Report from Study
  Country: US (occurrence: US)
  Receive Date: 20130430
  Receipt Date: 20131212
  Transmission Date: 20140711
  Serious: Yes (Hospitalization)
  Sender: FDA-Public Use
  Company Number: US-ROCHE-1217272

PATIENT
  Age: 40 Year
  Sex: Female
  Weight: 68.9 kg

DRUGS (4)
  1. CAPECITABINE [Suspect]
     Indication: BREAST CANCER
     Route: 048
     Dates: start: 20120802
  2. LORAZEPAM [Concomitant]
     Route: 065
     Dates: start: 20110817
  3. LEXAPRO [Concomitant]
     Route: 065
     Dates: start: 20120802
  4. ZOLPIDEM [Concomitant]
     Route: 065
     Dates: start: 20121025

REACTIONS (1)
  - Mental status changes [Recovered/Resolved with Sequelae]
